FAERS Safety Report 25147288 (Version 2)
Quarter: 2025Q2

REPORT INFORMATION
  Report Type: Spontaneous
  Country: US (occurrence: US)
  Receive Date: 20250401
  Receipt Date: 20250522
  Transmission Date: 20250716
  Serious: No
  Sender: BRISTOL-MYERS SQUIBB COMPANY
  Company Number: US-BRISTOL-MYERS SQUIBB COMPANY-2025-048312

PATIENT
  Age: 62 Year
  Sex: Female

DRUGS (1)
  1. ORENCIA [Suspect]
     Active Substance: ABATACEPT
     Indication: Product used for unknown indication
     Dosage: DOSE: 125MG/1ML
     Route: 058

REACTIONS (8)
  - Skin laceration [Unknown]
  - Viral infection [Unknown]
  - Product dose omission issue [Unknown]
  - COVID-19 [Unknown]
  - Blister [Unknown]
  - Nausea [Unknown]
  - Lethargy [Unknown]
  - Influenza like illness [Unknown]

NARRATIVE: CASE EVENT DATE: 20250201
